FAERS Safety Report 6437496-X (Version None)
Quarter: 2009Q4

REPORT INFORMATION
  Report Type: 
  Country: None (occurrence: None)
  Receive Date: 20091105
  Receipt Date: 20090513
  Transmission Date: 20100525
  Serious: Yes (Other)
  Sender: FDA-Public Use
  Company Number: 2009RR-22618

PATIENT
  Age: 68 Year
  Sex: Female

DRUGS (9)
  1. METFORMIN HCL [Suspect]
  2. HYDROCHLOROTHIAZIDE [Concomitant]
  3. FUROSEMIDE [Concomitant]
  4. ASPIRIN [Concomitant]
  5. PRILOSEC [Concomitant]
  6. EZETIMIBE/SIMVASTATIN (EZETIMIBE SIMVASTATIN) [Concomitant]
  7. NIFEDIPINE [Concomitant]
  8. INSULIN (INSULIB) [Concomitant]
  9. MTP (METHYLPHENIDATE) [Concomitant]

REACTIONS (1)
  - METABOLIC ACIDOSIS [None]
